FAERS Safety Report 8956236 (Version 1)
Quarter: 2012Q4

REPORT INFORMATION
  Report Type: 
  Country: FR (occurrence: FR)
  Receive Date: 20121210
  Receipt Date: 20121210
  Transmission Date: 20130627
  Serious: Yes (Hospitalization)
  Sender: FDA-Public Use
  Company Number: FR-ASTRAZENECA-2012SE90389

PATIENT
  Age: 29220 Day
  Sex: Male

DRUGS (8)
  1. CASODEX [Suspect]
     Indication: PROSTATE CANCER
     Route: 048
     Dates: start: 20120724
  2. DECAPEPTYL [Suspect]
     Indication: PROSTATE CANCER
     Dates: start: 20120724
  3. COVERSYL [Suspect]
     Route: 048
     Dates: start: 2004, end: 20120806
  4. ADENURIC [Concomitant]
  5. LASILIX [Concomitant]
  6. TARDYFERON [Concomitant]
  7. EFFERALGAN [Concomitant]
     Dosage: EVERY DAY
  8. FIRMAGON [Concomitant]
     Dates: end: 20120724

REACTIONS (1)
  - Angioedema [Recovered/Resolved]
